FAERS Safety Report 8525862-8 (Version None)
Quarter: 2012Q3

REPORT INFORMATION
  Report Type: 
  Country: None (occurrence: None)
  Receive Date: 20120720
  Receipt Date: 20120710
  Transmission Date: 20120928
  Serious: Yes (Other)
  Sender: FDA-Public Use
  Company Number: JP-VERTEX PHARMACEUTICALS INC.-AE-2012-009776

PATIENT
  Age: 45 Year
  Sex: Female

DRUGS (11)
  1. LANSOPRAZOLE [Concomitant]
  2. LANSOPRAZOLE [Concomitant]
     Dates: start: 20120514
  3. PEGASYS [Concomitant]
     Indication: HEPATITIS C
     Route: 058
     Dates: start: 20120514
  4. RIBAVIRIN [Concomitant]
     Route: 048
  5. MYSER [Concomitant]
  6. ALLOPURINOL [Concomitant]
  7. RIBAVIRIN [Concomitant]
     Indication: HEPATITIS C
     Route: 048
     Dates: start: 20120514
  8. TELAVIC (TELAPREVIR) [Suspect]
     Indication: HEPATITIS C
     Route: 048
     Dates: start: 20120514, end: 20120709
  9. RIBAVIRIN [Concomitant]
     Dates: end: 20120709
  10. ALLOPURINOL [Concomitant]
  11. ALLEGRA [Concomitant]
     Dates: start: 20120518

REACTIONS (2)
  - PANCREATITIS ACUTE [None]
  - MATERNAL EXPOSURE DURING PREGNANCY [None]
